FAERS Safety Report 4965868-9 (Version None)
Quarter: 2006Q2

REPORT INFORMATION
  Report Type: 
  Country: None (occurrence: None)
  Receive Date: 20060405
  Receipt Date: 20060405
  Transmission Date: 20061013
  Serious: Yes (Other)
  Sender: FDA-Public Use
  Company Number: None

PATIENT
  Age: 29 Year
  Sex: Male
  Weight: 72.5755 kg

DRUGS (2)
  1. PAXIL [Suspect]
     Indication: ANXIETY
     Dosage: 10 MG 1 PO
     Route: 048
     Dates: start: 20040101, end: 20060406
  2. PAXIL [Suspect]
     Indication: DEPRESSION
     Dosage: 10 MG 1 PO
     Route: 048
     Dates: start: 20040101, end: 20060406

REACTIONS (11)
  - ANGER [None]
  - COORDINATION ABNORMAL [None]
  - DEPRESSION [None]
  - DRUG THERAPY CHANGED [None]
  - DRUG WITHDRAWAL SYNDROME [None]
  - FEAR [None]
  - FEELING ABNORMAL [None]
  - FRUSTRATION [None]
  - LACERATION [None]
  - PARAESTHESIA [None]
  - SELF INJURIOUS BEHAVIOUR [None]
